FAERS Safety Report 18054572 (Version 2)
Quarter: 2020Q3

REPORT INFORMATION
  Report Type: Spontaneous
  Country: US (occurrence: US)
  Receive Date: 20200722
  Receipt Date: 20200925
  Transmission Date: 20201103
  Serious: Yes (Other)
  Sender: FDA-Public Use
  Company Number: US-PFIZER INC-2020278377

PATIENT
  Age: 53 Year
  Sex: Female

DRUGS (1)
  1. XELJANZ XR [Suspect]
     Active Substance: TOFACITINIB CITRATE
     Indication: RHEUMATOID ARTHRITIS
     Dosage: 11 MG, 1X/DAY
     Route: 048
     Dates: start: 20200620

REACTIONS (10)
  - Red blood cell count abnormal [Unknown]
  - Eye pain [Unknown]
  - Hot flush [Unknown]
  - Contusion [Unknown]
  - Pain [Unknown]
  - Drug ineffective [Unknown]
  - White blood cell count abnormal [Unknown]
  - Blindness [Unknown]
  - Headache [Unknown]
  - Skin discolouration [Unknown]
